FAERS Safety Report 8207635-9 (Version None)
Quarter: 2012Q1

REPORT INFORMATION
  Report Type: 
  Country: None (occurrence: None)
  Receive Date: 20120314
  Receipt Date: 20120301
  Transmission Date: 20120608
  Serious: Yes (Hospitalization)
  Sender: FDA-Public Use
  Company Number: FR-SANOFI-AVENTIS-2012SA013881

PATIENT
  Age: 82 Year
  Sex: Male

DRUGS (11)
  1. ISONIAZID [Concomitant]
     Indication: PULMONARY TUBERCULOSIS
     Route: 065
     Dates: start: 20111119
  2. RIFADIN [Suspect]
     Indication: PULMONARY TUBERCULOSIS
     Route: 065
     Dates: start: 20111119, end: 20111128
  3. ZYVOX [Concomitant]
     Indication: LUNG INFECTION
     Route: 065
     Dates: start: 20111119
  4. ETHAMBUTOL HYDROCHLORIDE [Concomitant]
     Indication: PULMONARY TUBERCULOSIS
     Route: 065
     Dates: start: 20111119
  5. PYRAZINAMIDE [Concomitant]
     Indication: PULMONARY TUBERCULOSIS
     Route: 065
     Dates: start: 20111119
  6. AMIKACIN [Concomitant]
     Indication: LUNG INFECTION
     Route: 065
     Dates: start: 20111119
  7. ATACAND [Concomitant]
     Route: 065
  8. LASIX [Concomitant]
     Route: 065
  9. BISOPROLOL FUMARATE [Concomitant]
     Route: 065
  10. PIPERACILLIN AND TAZOBACTAM [Concomitant]
     Indication: LUNG INFECTION
     Route: 065
     Dates: start: 20111119
  11. ANDROCUR [Concomitant]
     Route: 065

REACTIONS (5)
  - CARDIAC FAILURE [None]
  - RENAL FAILURE [None]
  - THROMBOCYTOPENIA [None]
  - ANAEMIA [None]
  - HISTIOCYTOSIS HAEMATOPHAGIC [None]
